FAERS Safety Report 7245568-5 (Version None)
Quarter: 2011Q1

REPORT INFORMATION
  Report Type: 
  Country: None (occurrence: None)
  Receive Date: 20110126
  Receipt Date: 20101117
  Transmission Date: 20110831
  Serious: No
  Sender: FDA-Public Use
  Company Number: US-BAUSCH-2010BL006589

PATIENT
  Age: 47 Year
  Sex: Male

DRUGS (2)
  1. SULFACETAMIDE SODIUM [Suspect]
     Indication: CONJUNCTIVITIS INFECTIVE
     Route: 047
     Dates: start: 20101105
  2. CETIRIZINE HCL [Concomitant]
     Indication: SEASONAL ALLERGY
     Route: 048

REACTIONS (1)
  - DRUG EFFECT DECREASED [None]
